FAERS Safety Report 15269323 (Version 1)
Quarter: 2018Q3

REPORT INFORMATION
  Report Type: Spontaneous
  Country: US (occurrence: US)
  Receive Date: 20180813
  Receipt Date: 20180813
  Transmission Date: 20181010
  Serious: No
  Sender: FDA-Public Use
  Company Number: US-JNJFOC-20180720367

PATIENT
  Sex: Male

DRUGS (1)
  1. TYLENOL EXTRA STRENGTH [Suspect]
     Active Substance: ACETAMINOPHEN
     Indication: EYE PAIN
     Dosage: AT A TIME 3 TO 4 TIMES A DAY
     Route: 048
     Dates: end: 20180716

REACTIONS (1)
  - Product use in unapproved indication [Unknown]
